FAERS Safety Report 22173637 (Version 1)
Quarter: 2023Q2

REPORT INFORMATION
  Report Type: Spontaneous
  Country: US (occurrence: None)
  Receive Date: 20230404
  Receipt Date: 20230404
  Transmission Date: 20230721
  Serious: No
  Sender: FDA-Public Use
  Company Number: None

PATIENT
  Age: 60 Year
  Sex: Female
  Weight: 92.53 kg

DRUGS (1)
  1. XELJANZ [Suspect]
     Active Substance: TOFACITINIB CITRATE
     Dosage: OTHER QUANTITY : TAKE 1 TABLET ;?FREQUENCY : TWICE A DAY;?
     Route: 048
     Dates: start: 202211

REACTIONS (3)
  - Infection [None]
  - Multiple allergies [None]
  - Therapy interrupted [None]
